FAERS Safety Report 17063389 (Version 1)
Quarter: 2019Q4

REPORT INFORMATION
  Report Type: Spontaneous
  Country: US (occurrence: US)
  Receive Date: 20191023
  Receipt Date: 20191023
  Transmission Date: 20200122
  Serious: No
  Sender: FDA-Public Use
  Company Number: None

PATIENT
  Age: 52 Year
  Sex: Female
  Weight: 74.84 kg

DRUGS (5)
  1. RELPAX [Suspect]
     Active Substance: ELETRIPTAN HYDROBROMIDE
     Indication: MIGRAINE
     Dosage: ?          QUANTITY:6 PER PACKET;?
     Route: 048
     Dates: start: 20190107, end: 20190916
  2. IBUPROFEN. [Concomitant]
     Active Substance: IBUPROFEN
  3. EXCEDRIN [Concomitant]
     Active Substance: ACETAMINOPHEN\ASPIRIN\CAFFEINE
  4. OMEGA 3 [Concomitant]
     Active Substance: OMEGA-3 FATTY ACIDS
  5. EMGALITY [Concomitant]
     Active Substance: GALCANEZUMAB-GNLM

REACTIONS (25)
  - Recalled product administered [None]
  - Chills [None]
  - Eye pruritus [None]
  - Insomnia [None]
  - Dyspepsia [None]
  - Flatulence [None]
  - Constipation [None]
  - Urinary tract infection [None]
  - Arthralgia [None]
  - Otorrhoea [None]
  - Feeling hot [None]
  - Palpitations [None]
  - Diarrhoea [None]
  - Headache [None]
  - Restless legs syndrome [None]
  - Myalgia [None]
  - Hyperhidrosis [None]
  - Lymph node pain [None]
  - Cough [None]
  - Productive cough [None]
  - Tinnitus [None]
  - Pruritus [None]
  - Fatigue [None]
  - Abdominal distension [None]
  - Dizziness [None]

NARRATIVE: CASE EVENT DATE: 20190723
